FAERS Safety Report 5240956-0 (Version None)
Quarter: 2007Q1

REPORT INFORMATION
  Report Type: 
  Country: None (occurrence: None)
  Receive Date: 20061201
  Receipt Date: 20060805
  Transmission Date: 20070707
  Serious: No
  Sender: FDA-Public Use
  Company Number: 2006PV018894

PATIENT
  Age: 64 Year
  Sex: Female
  Weight: 120.2032 kg

DRUGS (15)
  1. BYETTA [Suspect]
     Indication: DIABETES MELLITUS NON-INSULIN-DEPENDENT
     Dosage: SC
     Route: 058
     Dates: start: 20060802
  2. NOVOLOG MIX 70/30 [Concomitant]
  3. GLIPIZIDE [Concomitant]
  4. AVANDIA [Concomitant]
  5. ARTHROTEC [Concomitant]
  6. ALLOPURINOL [Concomitant]
  7. ATENOLOL [Concomitant]
  8. FUROSEMIDE [Concomitant]
  9. LISINOPRIL [Concomitant]
  10. EFFEXOR [Concomitant]
  11. SYNTHROID [Concomitant]
  12. ACTONEL [Concomitant]
  13. NORVASC [Concomitant]
  14. MAGNESIUM [Concomitant]
  15. FISH OIL [Concomitant]

REACTIONS (1)
  - MALAISE [None]
